FAERS Safety Report 9194123 (Version 1)
Quarter: 2013Q1

REPORT INFORMATION
  Report Type: Spontaneous
  Country: FR (occurrence: FR)
  Receive Date: 20130327
  Receipt Date: 20130327
  Transmission Date: 20140127
  Serious: Yes (Hospitalization, Disabling)
  Sender: FDA-Public Use
  Company Number: FR-NICOBRDEVP-2013-04850

PATIENT
  Age: 74 Year
  Sex: Female

DRUGS (2)
  1. ALPRAZOLAM (UNKNOWN) [Suspect]
     Indication: PRODUCT USED FOR UNKNOWN INDICATION
     Dosage: UNK, THREE TIMES A DAY
     Route: 065
  2. XANAX [Suspect]
     Indication: PRODUCT USED FOR UNKNOWN INDICATION
     Dosage: UNK, THREE TIMES A DAY
     Route: 065

REACTIONS (4)
  - Gait disturbance [Unknown]
  - Fall [Unknown]
  - Product substitution issue [Unknown]
  - Medication error [Unknown]
